FAERS Safety Report 13181849 (Version 1)
Quarter: 2017Q1

REPORT INFORMATION
  Report Type: Spontaneous
  Country: US (occurrence: US)
  Receive Date: 20170202
  Receipt Date: 20170202
  Transmission Date: 20170428
  Serious: No
  Sender: FDA-Public Use
  Company Number: US-IMPAX LABORATORIES, INC-2016-IPXL-01498

PATIENT
  Age: 69 Year
  Sex: Male

DRUGS (12)
  1. RYTARY [Suspect]
     Active Substance: CARBIDOPA\LEVODOPA
     Indication: PARKINSON^S DISEASE
     Dosage: 48.75/195MG, 1 CAPSULE 3 /DAY
     Route: 048
     Dates: start: 20161026, end: 20161026
  2. RYTARY [Suspect]
     Active Substance: CARBIDOPA\LEVODOPA
     Dosage: 48.75/195MG, 2 CAPSULES 3 /DAY
     Route: 048
     Dates: start: 20161027, end: 20161027
  3. MINERALS NOS W/VITAMINS NOS [Concomitant]
     Active Substance: MINERALS\VITAMINS
     Indication: PRODUCT USED FOR UNKNOWN INDICATION
     Dosage: UNK
     Route: 065
  4. RYTARY [Suspect]
     Active Substance: CARBIDOPA\LEVODOPA
     Dosage: 48.75/195MG, 4 CAPSULES AT 05:00 AM, 3 CAPSULES AT 10:00 AM AND 3 CAPSULES AT 03:00 PM
     Route: 048
     Dates: start: 20161107, end: 201611
  5. ENALAPRIL [Concomitant]
     Active Substance: ENALAPRIL
     Indication: BLOOD PRESSURE MEASUREMENT
     Dosage: 20 MG, 1 /DAY
     Route: 065
  6. PRAMIPEXOLE. [Concomitant]
     Active Substance: PRAMIPEXOLE
     Indication: RESTLESS LEGS SYNDROME
     Dosage: 1.5 MG, 3 /DAY
     Route: 065
  7. GLIPIZIDE. [Concomitant]
     Active Substance: GLIPIZIDE
     Indication: DIABETES MELLITUS
     Dosage: 20 MG, 2 /DAY
     Route: 065
  8. RYTARY [Suspect]
     Active Substance: CARBIDOPA\LEVODOPA
     Dosage: 48.75/195MG; 15 CAPSULES PER DAY
     Route: 048
  9. RYTARY [Suspect]
     Active Substance: CARBIDOPA\LEVODOPA
     Dosage: 48.75/195MG, 3 CAPSULES 3 /DAY
     Route: 048
     Dates: start: 20161028, end: 20161106
  10. CYMBALTA [Concomitant]
     Active Substance: DULOXETINE HYDROCHLORIDE
     Indication: SLEEP DISORDER
     Dosage: 30 MG, 1 /DAY
     Route: 065
  11. RYTARY [Suspect]
     Active Substance: CARBIDOPA\LEVODOPA
     Dosage: 48.75/195MG, 5 CAPSULES IN MORNING FOLLOWED BY 4 CAPSULES AFTER FIVE HOURS AND 4 CAPSULES IN 5HRS
     Route: 048
     Dates: start: 201611
  12. AMANTADINE [Concomitant]
     Active Substance: AMANTADINE
     Indication: PAIN
     Dosage: 100 MG 2 /DAY
     Route: 065

REACTIONS (6)
  - Drug effect variable [Unknown]
  - Hallucination [Not Recovered/Not Resolved]
  - Drug effect decreased [Not Recovered/Not Resolved]
  - Prescribed overdose [Unknown]
  - Tremor [Recovering/Resolving]
  - Asthenia [Not Recovered/Not Resolved]

NARRATIVE: CASE EVENT DATE: 2016
